FAERS Safety Report 6265999-X (Version None)
Quarter: 2009Q3

REPORT INFORMATION
  Report Type: 
  Country: None (occurrence: None)
  Receive Date: 20090709
  Receipt Date: 20090709
  Transmission Date: 20100115
  Serious: Yes (Other)
  Sender: FDA-Public Use
  Company Number: None

PATIENT
  Age: 64 Year
  Sex: Male
  Weight: 91.173 kg

DRUGS (2)
  1. LIPITOR [Suspect]
     Indication: HYPERLIPIDAEMIA
     Dosage: 20 MG QD PO
     Route: 048
     Dates: start: 20070601, end: 20080401
  2. ZOCOR [Suspect]
     Indication: HYPERLIPIDAEMIA
     Dosage: 40 MG QD PO
     Route: 048
     Dates: start: 20080801, end: 20080901

REACTIONS (2)
  - DISORIENTATION [None]
  - MEMORY IMPAIRMENT [None]
